FAERS Safety Report 9709678 (Version 3)
Quarter: 2013Q4

REPORT INFORMATION
  Report Type: Spontaneous
  Country: JP (occurrence: JP)
  Receive Date: 20131126
  Receipt Date: 20131205
  Transmission Date: 20140711
  Serious: Yes (Hospitalization, Other)
  Sender: FDA-Public Use
  Company Number: JP-JNJFOC-20131110541

PATIENT
  Age: 9 Decade
  Sex: Female

DRUGS (4)
  1. REMINYL [Suspect]
     Indication: DEMENTIA
     Route: 048
  2. DIOVAN [Suspect]
     Indication: HYPERTENSION
     Route: 048
  3. MICARDIS [Suspect]
     Indication: HYPERTENSION
     Route: 048
  4. ARICEPT [Concomitant]
     Indication: PRODUCT USED FOR UNKNOWN INDICATION
     Route: 048

REACTIONS (2)
  - Fracture [Unknown]
  - Renal disorder [Unknown]
